FAERS Safety Report 9166138 (Version 2)
Quarter: 2013Q1

REPORT INFORMATION
  Report Type: Spontaneous
  Country: GB (occurrence: None)
  Receive Date: 20130301
  Receipt Date: 20130322
  Transmission Date: 20140127
  Serious: Yes (Other)
  Sender: FDA-Public Use
  Company Number: 2013-0834

PATIENT
  Sex: Female

DRUGS (1)
  1. SOMATULINE AUTOGEL 60MG (LANREOTIDE AUTOGEL) (LANREOTIDE) (LANREOTIDE ACETATE) [Suspect]
     Indication: PRODUCT USED FOR UNKNOWN INDICATION
     Dates: start: 20130220

REACTIONS (2)
  - Anaphylactic reaction [None]
  - Angioedema [None]
